FAERS Safety Report 4760339-7 (Version None)
Quarter: 2005Q3

REPORT INFORMATION
  Report Type: 
  Country: None (occurrence: None)
  Receive Date: 20050902
  Receipt Date: 20050608
  Transmission Date: 20060218
  Serious: Yes (Death, Hospitalization)
  Sender: FDA-Public Use
  Company Number: 2005UW08878

PATIENT
  Age: 25189 Day
  Sex: Female
  Weight: 88.6 kg

DRUGS (16)
  1. IRESSA [Suspect]
     Indication: NON-SMALL CELL LUNG CANCER STAGE III
     Route: 048
     Dates: start: 20040630, end: 20041001
  2. HALDOL [Suspect]
  3. ALBUTEROL [Concomitant]
  4. DECADRON [Concomitant]
  5. BACTRIM [Concomitant]
  6. DURAGESIC-100 [Concomitant]
  7. DIFLUCAN [Concomitant]
  8. FOLATE [Concomitant]
  9. ATROVENT [Concomitant]
  10. NABUMETONE [Concomitant]
  11. NABUMETINE [Concomitant]
  12. NYSTATIN [Concomitant]
  13. PROTONIX [Concomitant]
  14. ADVAIR DISKUS 100/50 [Concomitant]
  15. ALDACTONE [Concomitant]
  16. ATIVAN [Concomitant]
     Indication: ANXIETY

REACTIONS (10)
  - BLOOD PRESSURE DECREASED [None]
  - CHRONIC OBSTRUCTIVE PULMONARY DISEASE [None]
  - DEEP VEIN THROMBOSIS [None]
  - GENERAL PHYSICAL CONDITION ABNORMAL [None]
  - HYPOXIA [None]
  - INCORRECT DOSE ADMINISTERED [None]
  - INTERNATIONAL NORMALISED RATIO DECREASED [None]
  - MENTAL STATUS CHANGES [None]
  - PNEUMONITIS [None]
  - RESPIRATORY FAILURE [None]
